FAERS Safety Report 25878375 (Version 2)
Quarter: 2025Q4

REPORT INFORMATION
  Report Type: Spontaneous
  Country: EU (occurrence: EU)
  Receive Date: 20251003
  Receipt Date: 20251007
  Transmission Date: 20260117
  Serious: Yes (Other)
  Sender: RANBAXY
  Company Number: EU-AFSSAPS-GR2025000809

PATIENT
  Age: 23 Year
  Sex: Male
  Weight: 66 kg

DRUGS (1)
  1. OLANZAPINE [Suspect]
     Active Substance: OLANZAPINE
     Indication: Schizophrenia
     Dosage: 30 MILLIGRAM, DAILY
     Route: 048
     Dates: start: 20250401

REACTIONS (1)
  - Priapism [Not Recovered/Not Resolved]

NARRATIVE: CASE EVENT DATE: 20250401
